FAERS Safety Report 6943769-4 (Version None)
Quarter: 2010Q3

REPORT INFORMATION
  Report Type: 
  Country: None (occurrence: None)
  Receive Date: 20100826
  Receipt Date: 20100820
  Transmission Date: 20110219
  Serious: Yes (Hospitalization)
  Sender: FDA-Public Use
  Company Number: A0798102A

PATIENT
  Age: 42 Year
  Sex: Female

DRUGS (2)
  1. AVANDIA [Suspect]
     Indication: DIABETES MELLITUS
     Dosage: 4MG TWICE PER DAY
     Route: 048
  2. AVANDAMET [Suspect]
     Route: 048

REACTIONS (8)
  - ANAEMIA [None]
  - BLINDNESS [None]
  - CARDIAC FAILURE [None]
  - CARDIAC FAILURE CONGESTIVE [None]
  - ILL-DEFINED DISORDER [None]
  - MACULAR OEDEMA [None]
  - MULTIPLE FRACTURES [None]
  - RETINAL DETACHMENT [None]
